FAERS Safety Report 25157336 (Version 2)
Quarter: 2025Q2

REPORT INFORMATION
  Report Type: Spontaneous
  Country: US (occurrence: US)
  Receive Date: 20250403
  Receipt Date: 20250408
  Transmission Date: 20250717
  Serious: No
  Sender: VERONA PHARMA
  Company Number: US-VERONA PHARMA-VER-002921

PATIENT
  Sex: Male

DRUGS (1)
  1. OHTUVAYRE [Suspect]
     Active Substance: ENSIFENTRINE
     Indication: Product used for unknown indication
     Dosage: 3 MILLIGRAM, BID
     Dates: start: 202411, end: 20250210

REACTIONS (5)
  - Paranoia [Unknown]
  - Abnormal behaviour [Unknown]
  - Insomnia [Unknown]
  - Anxiety [Unknown]
  - Depression [Unknown]

NARRATIVE: CASE EVENT DATE: 20250201
